FAERS Safety Report 5595327-4 (Version None)
Quarter: 2008Q1

REPORT INFORMATION
  Report Type: 
  Country: None (occurrence: None)
  Receive Date: 20080117
  Receipt Date: 20080111
  Transmission Date: 20080703
  Serious: Yes (Hospitalization)
  Sender: FDA-Public Use
  Company Number: US-GENENTECH-254166

PATIENT
  Sex: Female
  Weight: 61.3 kg

DRUGS (7)
  1. BEVACIZUMAB [Suspect]
     Indication: BREAST CANCER METASTATIC
     Dosage: 630 MG, UNK
     Route: 042
     Dates: start: 20071210
  2. ABRAXANE [Suspect]
     Indication: BREAST CANCER METASTATIC
     Dosage: 222 MG, UNK
     Route: 042
     Dates: start: 20071210
  3. ABRAXANE [Suspect]
     Dosage: 220 MG, UNK
  4. PREDNISONE TAB [Concomitant]
     Indication: OEDEMA PERIPHERAL
     Dosage: 10 MG, UNK
     Route: 048
     Dates: start: 20071204
  5. ZOFRAN [Concomitant]
     Indication: PROPHYLAXIS
     Dosage: 32 MG, UNK
     Route: 042
     Dates: start: 20071210
  6. DECADRON [Concomitant]
     Indication: PROPHYLAXIS
     Dosage: 10 MG, UNK
     Route: 042
     Dates: start: 20071210
  7. BONIVA [Concomitant]
     Indication: OSTEOPOROSIS
     Route: 048
     Dates: start: 20060101

REACTIONS (1)
  - DIVERTICULITIS [None]
